FAERS Safety Report 6930067-8 (Version None)
Quarter: 2010Q3

REPORT INFORMATION
  Report Type: 
  Country: None (occurrence: None)
  Receive Date: 20100818
  Receipt Date: 20100811
  Transmission Date: 20110219
  Serious: Yes (Other)
  Sender: FDA-Public Use
  Company Number: US-BAYER-201028234NA

PATIENT
  Age: 16 Year
  Sex: Male
  Weight: 111 kg

DRUGS (4)
  1. AVELOX [Suspect]
     Indication: ACUTE SINUSITIS
     Dosage: TOTAL DAILY DOSE: 400 MG  UNIT DOSE: 400 MG
     Route: 048
  2. MULTI-VITAMIN [Concomitant]
     Route: 065
  3. B VITAMIN/FISH OIL [Concomitant]
     Route: 065
  4. B VITAMIN/FISH OIL [Concomitant]

REACTIONS (4)
  - ANAPHYLACTIC REACTION [None]
  - EYELID OEDEMA [None]
  - FLUSHING [None]
  - SWELLING FACE [None]
